FAERS Safety Report 4981654-8 (Version None)
Quarter: 2006Q2

REPORT INFORMATION
  Report Type: 
  Country: None (occurrence: None)
  Receive Date: 20060420
  Receipt Date: 20060420
  Transmission Date: 20061013
  Serious: Yes (Other)
  Sender: FDA-Public Use
  Company Number: None

PATIENT
  Age: 13 Year
  Sex: Female
  Weight: 65.7716 kg

DRUGS (3)
  1. LAMICTAL [Suspect]
     Indication: AFFECTIVE DISORDER
     Dosage: 25 MG 3QDAY PO
     Route: 048
     Dates: start: 20060112
  2. LAMICTAL [Suspect]
     Indication: AFFECTIVE DISORDER
     Dosage: 25 MG 3QDAY PO
     Route: 048
     Dates: start: 20060209
  3. TRAZODONE HCL [Concomitant]

REACTIONS (4)
  - GRANDIOSITY [None]
  - INSOMNIA [None]
  - MANIA [None]
  - SEXUAL ACTIVITY INCREASED [None]
